FAERS Safety Report 6552105-7 (Version None)
Quarter: 2010Q1

REPORT INFORMATION
  Report Type: 
  Country: None (occurrence: None)
  Receive Date: 20100126
  Receipt Date: 20100119
  Transmission Date: 20100710
  Serious: Yes (Other)
  Sender: FDA-Public Use
  Company Number: CA-JNJFOC-20100107514

PATIENT
  Sex: Female

DRUGS (6)
  1. SIMPONI [Suspect]
     Indication: ANKYLOSING SPONDYLITIS
     Route: 058
  2. ACTONEL [Concomitant]
  3. PARIET [Concomitant]
  4. GLUCOSAMINE [Concomitant]
  5. VITAMIN [Concomitant]
  6. CALCIUM [Concomitant]

REACTIONS (6)
  - DERMATITIS [None]
  - DYSPHAGIA [None]
  - MASS [None]
  - MOVEMENT DISORDER [None]
  - PAIN [None]
  - PAIN IN EXTREMITY [None]
